FAERS Safety Report 16534242 (Version 2)
Quarter: 2020Q1

REPORT INFORMATION
  Report Type: Report from Study
  Country: None (occurrence: US)
  Receive Date: 20190705
  Receipt Date: 20200103
  Transmission Date: 20200409
  Serious: Yes (Other)
  Sender: FDA-Public Use
  Company Number: US-ABBVIE-19K-163-2840263-00

PATIENT
  Age: 65 Year
  Sex: Male

DRUGS (1)
  1. DUOPA [Suspect]
     Active Substance: CARBIDOPA\LEVODOPA
     Indication: PARKINSON^S DISEASE
     Route: 050
     Dates: start: 20170728

REACTIONS (2)
  - Suicidal ideation [Not Recovered/Not Resolved]
  - Self-injurious ideation [Not Recovered/Not Resolved]

NARRATIVE: CASE EVENT DATE: 201906
